FAERS Safety Report 25409548 (Version 1)
Quarter: 2025Q2

REPORT INFORMATION
  Report Type: Spontaneous
  Country: US (occurrence: US)
  Receive Date: 20250607
  Receipt Date: 20250607
  Transmission Date: 20250717
  Serious: No
  Sender: BRAEBURN PHARMACEUTICALS
  Company Number: US-BRAEBURN PHARMACEUTICALS-US-BRA-25-000343

PATIENT

DRUGS (1)
  1. BRIXADI [Suspect]
     Active Substance: BUPRENORPHINE
     Indication: Drug dependence
     Dosage: 96 MILLIGRAM, INJECT 1 PRE-FILLED SYRINGE UNDER THE SKIN EVERY 3 TO 4 WEEKS
     Route: 058

REACTIONS (4)
  - Sciatica [Unknown]
  - Gait disturbance [Unknown]
  - Visual impairment [Unknown]
  - Pain [Unknown]
